FAERS Safety Report 8822988 (Version 1)
Quarter: 2012Q4

REPORT INFORMATION
  Report Type: 
  Country: US (occurrence: US)
  Receive Date: 20121003
  Receipt Date: 20121003
  Transmission Date: 20130627
  Serious: Yes (Other)
  Sender: FDA-Public Use
  Company Number: US-ROCHE-1134036

PATIENT
  Sex: Female

DRUGS (2)
  1. RITUXAN [Suspect]
     Indication: ANAEMIA HAEMOLYTIC AUTOIMMUNE
     Route: 065
  2. RITUXAN [Suspect]
     Indication: OFF LABEL USE

REACTIONS (3)
  - Blindness [Unknown]
  - Neurological symptom [Unknown]
  - Vasculitis [Unknown]
